FAERS Safety Report 19067274 (Version 1)
Quarter: 2021Q1

REPORT INFORMATION
  Report Type: Other
  Country: US (occurrence: US)
  Receive Date: 20210329
  Receipt Date: 20210329
  Transmission Date: 20210420
  Serious: Yes (Hospitalization)
  Sender: FDA-Public Use
  Company Number: US-ROCHE-2792334

PATIENT
  Sex: Female
  Weight: 83.99 kg

DRUGS (1)
  1. OCREVUS [Suspect]
     Active Substance: OCRELIZUMAB
     Indication: PROGRESSIVE RELAPSING MULTIPLE SCLEROSIS
     Dosage: ONGOING:YES
     Route: 042
     Dates: start: 201909

REACTIONS (7)
  - Multiple sclerosis relapse [Recovered/Resolved]
  - Fatigue [Not Recovered/Not Resolved]
  - Ankle fracture [Recovered/Resolved]
  - Fall [Unknown]
  - Urinary tract infection [Recovered/Resolved]
  - Asthenia [Recovered/Resolved]
  - Pain [Not Recovered/Not Resolved]

NARRATIVE: CASE EVENT DATE: 2020
